FAERS Safety Report 8290285-6 (Version None)
Quarter: 2012Q2

REPORT INFORMATION
  Report Type: 
  Country: None (occurrence: None)
  Receive Date: 20120417
  Receipt Date: 20120406
  Transmission Date: 20120825
  Serious: Yes (Hospitalization)
  Sender: FDA-Public Use
  Company Number: US-VERTEX PHARMACEUTICALS INC.-AE-2012-004997

PATIENT
  Sex: Female

DRUGS (7)
  1. INCIVEK [Suspect]
     Route: 048
     Dates: start: 20120327
  2. PEGASYS [Concomitant]
     Dates: start: 20120327
  3. RIBAVIRIN [Concomitant]
     Indication: HEPATITIS C
     Dates: start: 20120204, end: 20120326
  4. RIBAVIRIN [Concomitant]
     Dates: start: 20120327
  5. LISINOPRIL [Concomitant]
     Dates: end: 20120326
  6. PEGASYS [Concomitant]
     Indication: HEPATITIS C
     Dates: start: 20120204, end: 20120326
  7. INCIVEK [Suspect]
     Indication: HEPATITIS C
     Route: 048
     Dates: start: 20120204, end: 20120326

REACTIONS (3)
  - BURNING SENSATION [None]
  - LIP SWELLING [None]
  - OROPHARYNGEAL BLISTERING [None]
